FAERS Safety Report 24595617 (Version 2)
Quarter: 2024Q4

REPORT INFORMATION
  Report Type: Spontaneous
  Country: DE (occurrence: DE)
  Receive Date: 20241109
  Receipt Date: 20241206
  Transmission Date: 20250114
  Serious: Yes (Other)
  Sender: ABBVIE
  Company Number: DE-ABBVIE-5991830

PATIENT
  Age: 23 Year
  Sex: Female

DRUGS (2)
  1. HUMIRA [Suspect]
     Active Substance: ADALIMUMAB
     Indication: Crohn^s disease
     Route: 058
     Dates: start: 2016, end: 202301
  2. IMRALDI [Suspect]
     Active Substance: ADALIMUMAB
     Indication: Crohn^s disease
     Route: 058

REACTIONS (6)
  - Pulmonary mass [Unknown]
  - Upper respiratory tract infection [Unknown]
  - Renal pain [Unknown]
  - Thyroiditis subacute [Unknown]
  - COVID-19 [Unknown]
  - Granuloma [Unknown]

NARRATIVE: CASE EVENT DATE: 20220401
